FAERS Safety Report 10160337 (Version 1)
Quarter: 2014Q2

REPORT INFORMATION
  Report Type: Spontaneous
  Country: US (occurrence: None)
  Receive Date: 20140507
  Receipt Date: 20140507
  Transmission Date: 20141212
  Serious: Yes (Life-Threatening)
  Sender: FDA-Public Use
  Company Number: None

PATIENT
  Sex: Male
  Weight: 83.92 kg

DRUGS (17)
  1. DIGOXIN [Suspect]
     Indication: CARDIAC VALVE DISEASE
  2. DIGOXIN [Suspect]
     Indication: SURGICAL PROCEDURE REPEATED
  3. METOPROLOL [Suspect]
     Indication: CARDIAC VALVE DISEASE
  4. METOPROLOL [Suspect]
     Indication: SURGICAL PROCEDURE REPEATED
  5. WARFARIN [Suspect]
     Indication: CARDIAC VALVE DISEASE
  6. WARFARIN [Suspect]
     Indication: SURGICAL PROCEDURE REPEATED
  7. ATORVASTATIN [Suspect]
     Indication: CARDIAC VALVE DISEASE
  8. ATORVASTATIN [Suspect]
     Indication: SURGICAL PROCEDURE REPEATED
  9. DIGOXIN [Concomitant]
  10. METOPROLOL [Concomitant]
  11. WARFARIN [Concomitant]
  12. METOPROLOL [Concomitant]
  13. ATORVASTATIN [Suspect]
  14. SLIM SORRENE [Concomitant]
  15. VITAMINS + MINERALS [Concomitant]
  16. SLIM FAST [Concomitant]
  17. GLUCOSAMINE CHONDROITIN [Concomitant]

REACTIONS (11)
  - Dizziness [None]
  - Somnolence [None]
  - Syncope [None]
  - Headache [None]
  - Tremor [None]
  - Hyperhidrosis [None]
  - Visual impairment [None]
  - Asthenia [None]
  - Heart rate irregular [None]
  - Heart rate decreased [None]
  - Basal cell carcinoma [None]
